FAERS Safety Report 7980265-X (Version None)
Quarter: 2011Q4

REPORT INFORMATION
  Report Type: 
  Country: None (occurrence: None)
  Receive Date: 20111212
  Receipt Date: 20111128
  Transmission Date: 20120403
  Serious: Yes (Other)
  Sender: FDA-Public Use
  Company Number: TPG2011A03152

PATIENT
  Age: 70 Year
  Sex: Male

DRUGS (1)
  1. ACTOS [Suspect]
     Indication: PRODUCT USED FOR UNKNOWN INDICATION
     Route: 048
     Dates: start: 20050101, end: 20111124

REACTIONS (1)
  - TRANSITIONAL CELL CARCINOMA [None]
